FAERS Safety Report 8586531-1 (Version None)
Quarter: 2012Q3

REPORT INFORMATION
  Report Type: 
  Country: None (occurrence: None)
  Receive Date: 20120810
  Receipt Date: 20120803
  Transmission Date: 20120928
  Serious: Yes (Other)
  Sender: FDA-Public Use
  Company Number: IT-JNJFOC-20120802151

PATIENT
  Age: 63 Year
  Sex: Female

DRUGS (3)
  1. ZOLPIDEM TARTRATE [Suspect]
     Indication: MULTIPLE DRUG OVERDOSE
     Route: 065
     Dates: start: 20120803, end: 20120803
  2. TOPAMAX [Suspect]
     Indication: PRODUCT USED FOR UNKNOWN INDICATION
     Route: 048
     Dates: start: 20120803, end: 20120803
  3. ZOLOFT [Suspect]
     Indication: MULTIPLE DRUG OVERDOSE
     Route: 048
     Dates: start: 20120803, end: 20120803

REACTIONS (3)
  - SELF INJURIOUS BEHAVIOUR [None]
  - MULTIPLE DRUG OVERDOSE [None]
  - SOPOR [None]
